FAERS Safety Report 8449291 (Version 2)
Quarter: 2013Q2

REPORT INFORMATION
  Report Type: Report from Study
  Country: MX (occurrence: MX)
  Receive Date: 20120308
  Receipt Date: 20130422
  Transmission Date: 20140414
  Serious: Yes (Death, Other)
  Sender: FDA-Public Use
  Company Number: PHHY2012MX019944

PATIENT
  Age: 74 Year
  Sex: Female

DRUGS (1)
  1. CO-DIOVAN [Suspect]
     Indication: HYPERTENSION
     Dosage: 2 TABLETS (80/12.5 MG) DAILY
     Route: 048
     Dates: start: 20100313

REACTIONS (6)
  - Pancreatic carcinoma [Fatal]
  - Hepatitis [Unknown]
  - Jaundice [Unknown]
  - Abdominal pain upper [Unknown]
  - Diarrhoea [Unknown]
  - Diabetes mellitus [Unknown]
